FAERS Safety Report 10051715 (Version 1)
Quarter: 2014Q2

REPORT INFORMATION
  Report Type: Report from Study
  Country: MX (occurrence: MX)
  Receive Date: 20140401
  Receipt Date: 20140401
  Transmission Date: 20141212
  Serious: Yes (Hospitalization, Other)
  Sender: FDA-Public Use
  Company Number: PHHY2011MX119441

PATIENT
  Age: 86 Year
  Sex: Male

DRUGS (5)
  1. CO-DIOVAN [Suspect]
     Dosage: 1 DF(160/25MG), DAILY
     Route: 048
     Dates: start: 20110317
  2. OMEPRAZOLE [Concomitant]
     Dosage: 1 UKN, DAILY
  3. EUTIROX [Concomitant]
     Dosage: 0.5 UKN, DAILY
  4. CALTUSINE [Concomitant]
     Dosage: UNK UKN, UNK
  5. RISPERDAL [Concomitant]
     Dosage: 1.5 ML, DAILY

REACTIONS (1)
  - Pituitary tumour benign [Recovered/Resolved]
